FAERS Safety Report 7940804-1 (Version None)
Quarter: 2011Q4

REPORT INFORMATION
  Report Type: 
  Country: None (occurrence: None)
  Receive Date: 20111128
  Receipt Date: 20111122
  Transmission Date: 20120403
  Serious: Yes (Hospitalization, Other)
  Sender: FDA-Public Use
  Company Number: NL-PFIZER INC-2011278050

PATIENT
  Age: 57 Year
  Sex: Female
  Weight: 60 kg

DRUGS (1)
  1. LYRICA [Suspect]
     Indication: FACIAL PAIN
     Dosage: 75MG
     Dates: start: 20111021, end: 20111028

REACTIONS (7)
  - CONFUSIONAL STATE [None]
  - LISTLESS [None]
  - AMNESIA [None]
  - BLISTER [None]
  - LOSS OF CONSCIOUSNESS [None]
  - TREMOR [None]
  - FEELING ABNORMAL [None]
